FAERS Safety Report 7450019-1 (Version None)
Quarter: 2011Q2

REPORT INFORMATION
  Report Type: 
  Country: None (occurrence: None)
  Receive Date: 20110502
  Receipt Date: 20090813
  Transmission Date: 20111010
  Serious: Yes (Death, Other)
  Sender: FDA-Public Use
  Company Number: US-BAYER-200929729NA

PATIENT
  Age: 72 Year
  Sex: Female
  Weight: 54.422 kg

DRUGS (22)
  1. TRASYLOL [Suspect]
     Indication: AORTIC VALVE REPLACEMENT
     Dosage: 200MG X2
     Route: 042
     Dates: start: 20070810, end: 20070810
  2. INSULIN [Concomitant]
     Dosage: LANTUS 20 UNITS AT NIGHT
     Route: 058
     Dates: start: 20070806
  3. LISINOPRIL [Concomitant]
     Dosage: 5 MG, QD
     Route: 048
  4. LIPITOR [Concomitant]
     Dosage: 10 MG, QD
     Route: 048
  5. COREG [Concomitant]
     Dosage: 6.25 MG, QID
     Route: 048
  6. DILANTIN [Concomitant]
     Dosage: 100 MG, TID
     Route: 048
  7. ACETYLSALICYLIC ACID SRT [Concomitant]
     Dosage: 325 MG, QD
  8. VANCOMYCIN [Concomitant]
     Dosage: D5W 250ML EVERY 18 HOURS
     Route: 042
     Dates: start: 20070727
  9. IMDUR [Concomitant]
     Dosage: 60 MG, UNK
     Route: 048
  10. PLAVIX [Concomitant]
     Dosage: 75 MG, UNK
     Route: 048
  11. DOBUTAMINE HYDROCHLORIDE [Concomitant]
     Dosage: 250 MG, UNK
     Route: 042
     Dates: start: 20070810
  12. GENTAMICIN [Concomitant]
     Dosage: EVERY 12 HOURS
     Route: 042
     Dates: start: 20070803
  13. LEVOPHED [Concomitant]
     Dosage: 8 MG, UNK
     Route: 042
     Dates: start: 20070810
  14. ISOLYTE [Concomitant]
     Dosage: 1000CC
     Route: 042
     Dates: start: 20070810
  15. DOPAMINE HCL [Concomitant]
     Dosage: UNK
     Route: 042
     Dates: start: 20070810
  16. RED BLOOD CELLS [Concomitant]
     Dosage: 8 UNITS
     Dates: start: 20070810
  17. PRIMACOR [Concomitant]
     Dosage: 40 MG, UNK
     Route: 042
     Dates: start: 20070810
  18. TRASYLOL [Suspect]
     Indication: MITRAL VALVE REPLACEMENT
  19. FRESH FROZEN PLASMA [Concomitant]
     Dosage: 284CC
     Dates: start: 20070810
  20. TRASYLOL [Suspect]
     Indication: CORONARY ARTERY BYPASS
  21. AMIODARONE [Concomitant]
     Dosage: 450 MG, UNK
     Route: 042
     Dates: start: 20070810
  22. PLATELETS [Concomitant]
     Dosage: UNK
     Dates: start: 20070810

REACTIONS (12)
  - STRESS [None]
  - INJURY [None]
  - FEAR [None]
  - CARDIAC ARREST [None]
  - CARDIAC FAILURE [None]
  - DEATH [None]
  - EMOTIONAL DISTRESS [None]
  - MYOCARDIAL INFARCTION [None]
  - HEART INJURY [None]
  - ANXIETY [None]
  - UNEVALUABLE EVENT [None]
  - PAIN [None]
